FAERS Safety Report 10575839 (Version 1)
Quarter: 2014Q4

REPORT INFORMATION
  Report Type: Spontaneous
  Country: US (occurrence: None)
  Receive Date: 20141110
  Receipt Date: 20141110
  Transmission Date: 20150529
  Serious: Yes (Life-Threatening, Hospitalization, Disabling)
  Sender: FDA-Public Use
  Company Number: None

PATIENT
  Age: 71 Year
  Sex: Male
  Weight: 99.79 kg

DRUGS (1)
  1. LORAZEPAM. [Suspect]
     Active Substance: LORAZEPAM
     Indication: MUSCLE SPASMS
     Dosage: 1?
     Dates: start: 20130704, end: 20130704

REACTIONS (5)
  - Fall [None]
  - Coma [None]
  - Subdural haematoma [None]
  - Skin abrasion [None]
  - Laceration [None]

NARRATIVE: CASE EVENT DATE: 20130704
